FAERS Safety Report 7307629-1 (Version None)
Quarter: 2011Q1

REPORT INFORMATION
  Report Type: 
  Country: None (occurrence: None)
  Receive Date: 20110223
  Receipt Date: 20110209
  Transmission Date: 20110831
  Serious: Yes (Life-Threatening, Hospitalization, Other)
  Sender: FDA-Public Use
  Company Number: US-CELGENEUS-163-21880-10121797

PATIENT
  Sex: Female

DRUGS (9)
  1. FAMOTIDINE [Concomitant]
     Route: 065
  2. MIRALAX [Concomitant]
     Route: 065
  3. ZOFRAN [Concomitant]
     Route: 065
  4. VELCADE [Concomitant]
     Route: 065
  5. REVLIMID [Suspect]
     Indication: MULTIPLE MYELOMA
     Route: 048
     Dates: start: 20100914
  6. TEKTURNA [Concomitant]
     Dosage: 300
     Route: 065
  7. COLACE [Concomitant]
     Route: 065
  8. LOPERAMIDE [Concomitant]
     Route: 065
  9. CLONIDINE [Concomitant]
     Route: 065

REACTIONS (2)
  - MENINGITIS STREPTOCOCCAL [None]
  - HERPES ZOSTER [None]
